FAERS Safety Report 5242290-1 (Version None)
Quarter: 2007Q1

REPORT INFORMATION
  Report Type: 
  Country: None (occurrence: None)
  Receive Date: 20070216
  Receipt Date: 20070216
  Transmission Date: 20070707
  Serious: Yes (Death)
  Sender: FDA-Public Use
  Company Number: None

PATIENT
  Age: 74 Year
  Sex: Male

DRUGS (12)
  1. REVLIMID [Suspect]
     Indication: MULTIPLE MYELOMA
     Dosage: 25 MG DAILY 21D/28 D PO
     Route: 048
  2. CLARITHROMYCIN [Concomitant]
  3. TERAZOSIN HCL [Concomitant]
  4. AMINOCAPROIC ACID [Concomitant]
  5. CHLORPROMAZINE [Concomitant]
  6. NITROGLYCERIN [Concomitant]
  7. AREDIA [Concomitant]
  8. ENTREX-LA [Concomitant]
  9. PROZAC [Concomitant]
  10. DEXAMETHASONE [Concomitant]
  11. MEVACOR [Concomitant]
  12. LEVOTHROID [Concomitant]

REACTIONS (2)
  - MALIGNANT NEOPLASM PROGRESSION [None]
  - MULTIPLE MYELOMA [None]
